FAERS Safety Report 4407181-4 (Version None)
Quarter: 2004Q3

REPORT INFORMATION
  Report Type: 
  Country: None (occurrence: None)
  Receive Date: 20040726
  Receipt Date: 20040716
  Transmission Date: 20050211
  Serious: Yes (Death, Hospitalization)
  Sender: FDA-Public Use
  Company Number: 200415420US

PATIENT
  Sex: Female
  Weight: 119 kg

DRUGS (5)
  1. DOCETAXEL [Suspect]
     Indication: NON-SMALL CELL LUNG CANCER
     Route: 042
     Dates: start: 20040510, end: 20040621
  2. CISPLATIN [Suspect]
     Route: 042
     Dates: start: 20040223, end: 20040407
  3. ETOPOSIDE [Suspect]
     Dates: start: 20040223, end: 20040407
  4. RADIATION THERAPY [Suspect]
     Dates: start: 20040223
  5. SINGULAIR [Concomitant]

REACTIONS (8)
  - ATELECTASIS [None]
  - BLOOD BICARBONATE DECREASED [None]
  - BLOOD PH INCREASED [None]
  - CHRONIC OBSTRUCTIVE AIRWAYS DISEASE EXACERBATED [None]
  - CLOSTRIDIUM COLITIS [None]
  - LABORATORY TEST ABNORMAL [None]
  - NEUTROPHIL COUNT INCREASED [None]
  - PCO2 DECREASED [None]
